FAERS Safety Report 7593058-2 (Version None)
Quarter: 2011Q3

REPORT INFORMATION
  Report Type: 
  Country: None (occurrence: None)
  Receive Date: 20110706
  Receipt Date: 20110701
  Transmission Date: 20111222
  Serious: Yes (Hospitalization)
  Sender: FDA-Public Use
  Company Number: FR-ROCHE-777333

PATIENT
  Sex: Female

DRUGS (13)
  1. BENERVA [Concomitant]
     Dates: start: 20110331, end: 20110414
  2. BECILAN [Concomitant]
     Dates: start: 20110331, end: 20110414
  3. ROCEPHIN [Suspect]
     Route: 042
     Dates: start: 20110323, end: 20110420
  4. ZOLPIDEM [Concomitant]
     Route: 048
     Dates: start: 20110321, end: 20110422
  5. XANAX [Concomitant]
     Route: 048
     Dates: start: 20110321, end: 20110422
  6. NEXIUM [Concomitant]
     Route: 048
     Dates: start: 20110321, end: 20110420
  7. GENTAMICIN [Suspect]
     Route: 042
     Dates: start: 20110223, end: 20110405
  8. CORDARONE [Concomitant]
     Route: 048
     Dates: start: 20110321, end: 20110421
  9. HEMIGOXINE NATIVELLE [Concomitant]
     Route: 048
     Dates: start: 20110321, end: 20110419
  10. CALCIPARINE [Concomitant]
     Dosage: 5000 IU/0.2 ML
     Route: 058
     Dates: start: 20110326, end: 20110423
  11. OLICLINOMEL [Concomitant]
     Route: 042
     Dates: start: 20110407, end: 20110411
  12. PAROXETINE HYDROCHLORIDE [Concomitant]
     Route: 048
     Dates: start: 20110321, end: 20110425
  13. METOCLOPRAMIDE [Concomitant]
     Route: 042
     Dates: start: 20110404

REACTIONS (1)
  - RENAL FAILURE ACUTE [None]
